FAERS Safety Report 11758458 (Version 1)
Quarter: 2015Q4

REPORT INFORMATION
  Report Type: Spontaneous
  Country: US (occurrence: None)
  Receive Date: 20151119
  Receipt Date: 20151119
  Transmission Date: 20160304
  Serious: No
  Sender: FDA-Public Use
  Company Number: None

PATIENT
  Age: 49 Year
  Sex: Female

DRUGS (1)
  1. ENBREL [Suspect]
     Active Substance: ETANERCEPT
     Route: 058
     Dates: start: 20150930, end: 20151103

REACTIONS (4)
  - Fatigue [None]
  - Local swelling [None]
  - Somnolence [None]
  - Pallor [None]

NARRATIVE: CASE EVENT DATE: 20151103
